FAERS Safety Report 19461407 (Version 6)
Quarter: 2021Q3

REPORT INFORMATION
  Report Type: Report from Study
  Country: PL (occurrence: PL)
  Receive Date: 20210625
  Receipt Date: 20210803
  Transmission Date: 20211014
  Serious: Yes (Hospitalization)
  Sender: FDA-Public Use
  Company Number: PL-LUNDBECK-DKLU3034352

PATIENT
  Age: 36 Year
  Sex: Female
  Weight: 82.9 kg

DRUGS (10)
  1. EPTINEZUMAB. [Suspect]
     Active Substance: EPTINEZUMAB
     Indication: MIGRAINE
     Route: 041
     Dates: start: 20210311, end: 20210311
  2. NIMESULIDUM [Concomitant]
     Indication: PAIN
     Route: 048
     Dates: start: 20210515, end: 20210521
  3. SOLPADEINE [Concomitant]
     Indication: MIGRAINE
     Dosage: PRN ? PLEASE BE INFORMED THAT THE PATIENT CONFIRMS THAT SHE TAKES THE DRUG AS PRN FREQUENTLY AND DOE
     Route: 048
     Dates: start: 2014
  4. KETAPROFENUM [Concomitant]
     Route: 048
     Dates: start: 20210519, end: 20210521
  5. EPTINEZUMAB. [Suspect]
     Active Substance: EPTINEZUMAB
     Route: 041
     Dates: start: 20210602, end: 20210602
  6. KETAPROFENUM [Concomitant]
     Indication: MIGRAINE
     Dosage: PRN
     Route: 048
     Dates: start: 2014
  7. SUMATRIPTANUM [Concomitant]
     Indication: MIGRAINE
     Dosage: PRN
     Route: 048
     Dates: start: 2018
  8. SERTRALINUM [Concomitant]
     Active Substance: SERTRALINE HYDROCHLORIDE
     Indication: INSOMNIA
     Route: 048
     Dates: start: 2020
  9. ZOLMITRIPTANUM [Concomitant]
     Indication: MIGRAINE
     Dosage: PRN
     Route: 048
     Dates: start: 2014
  10. NAPROXENUM [Concomitant]
     Indication: MIGRAINE
     Dosage: PRN
     Route: 048
     Dates: start: 202010

REACTIONS (1)
  - Psychogenic seizure [Recovered/Resolved]

NARRATIVE: CASE EVENT DATE: 20210615
